FAERS Safety Report 10367682 (Version 1)
Quarter: 2014Q3

REPORT INFORMATION
  Report Type: Spontaneous
  Country: GB (occurrence: GB)
  Receive Date: 20140807
  Receipt Date: 20140807
  Transmission Date: 20150326
  Serious: Yes (Death)
  Sender: FDA-Public Use
  Company Number: GB-009507513-1408GBR000831

PATIENT
  Age: 55 Year
  Sex: Male
  Weight: 71 kg

DRUGS (9)
  1. AMITRIPTYLINE HYDROCHLORIDE. [Concomitant]
     Active Substance: AMITRIPTYLINE HYDROCHLORIDE
     Indication: INSOMNIA
     Dosage: 10 MG, QD AT NIGHT
     Route: 048
  2. VIRAFERONPEG [Suspect]
     Active Substance: PEGINTERFERON ALFA-2B
     Dosage: 80 UNK, UNK
     Route: 058
     Dates: start: 20131218
  3. BISOPROLOL [Concomitant]
     Active Substance: BISOPROLOL
     Indication: HYPERTENSION
     Dosage: 2.5 MG, QD
     Route: 048
  4. REBETOL [Suspect]
     Active Substance: RIBAVIRIN
     Indication: HEPATIC CIRRHOSIS
     Dosage: 200 MG, BID
     Route: 048
     Dates: start: 20140212
  5. LOSORTAN POTASSIUM [Concomitant]
     Active Substance: LOSARTAN POTASSIUM
     Dosage: 50 MG, QD
     Route: 048
  6. REBETOL [Suspect]
     Active Substance: RIBAVIRIN
     Dosage: 400MG IN MORNING AND 600MG IN EVENING, REDUCED SEQUENTIALLY TO 200MG
     Route: 048
     Dates: start: 20131030, end: 20140212
  7. VIRAFERONPEG [Suspect]
     Active Substance: PEGINTERFERON ALFA-2B
     Indication: CHRONIC HEPATITIS C
     Dosage: 100 MICROGRAM, DOSE REDUCED TO 80MG
     Route: 058
     Dates: start: 20131030, end: 20131218
  8. INCIVO [Suspect]
     Active Substance: TELAPREVIR
     Indication: HEPATIC CIRRHOSIS
     Dosage: 1125 MG, BID
     Route: 048
     Dates: start: 20131127, end: 20140227
  9. CODEINE PHOSPHATE [Concomitant]
     Active Substance: CODEINE PHOSPHATE
     Indication: BACK PAIN
     Dosage: 30 MG, BID
     Route: 048

REACTIONS (4)
  - Myocardial ischaemia [Fatal]
  - Pulmonary oedema [Not Recovered/Not Resolved]
  - Emphysema [Not Recovered/Not Resolved]
  - Vomiting [Unknown]
